FAERS Safety Report 9049905 (Version 1)
Quarter: 2013Q1

REPORT INFORMATION
  Report Type: Report from Study
  Country: EC (occurrence: EC)
  Receive Date: 20130205
  Receipt Date: 20130205
  Transmission Date: 20140127
  Serious: Yes (Hospitalization)
  Sender: FDA-Public Use
  Company Number: EC-ROCHE-1187535

PATIENT
  Sex: Female

DRUGS (1)
  1. BONVIVA [Suspect]
     Indication: OSTEOPENIA
     Dosage: SOLUTION, UNIQUE DOSE
     Route: 042
     Dates: start: 201211

REACTIONS (1)
  - Back pain [Recovered/Resolved]
